FAERS Safety Report 5648990-3 (Version None)
Quarter: 2008Q1

REPORT INFORMATION
  Report Type: 
  Country: None (occurrence: None)
  Receive Date: 20080303
  Receipt Date: 20080303
  Transmission Date: 20080703
  Serious: Yes (Life-Threatening, Disabling, Other)
  Sender: FDA-Public Use
  Company Number: None

PATIENT
  Age: 30 Year
  Sex: Male
  Weight: 81.6475 kg

DRUGS (2)
  1. CHANTIX [Suspect]
     Indication: SMOKER
     Dosage: .5 MG ONCE PO;  1 MG TWICE PO
     Route: 048
     Dates: start: 20061201, end: 20070129
  2. CHANTIX [Suspect]
     Indication: SMOKER
     Dosage: .5 MG ONCE PO;  1 MG TWICE PO
     Route: 048
     Dates: start: 20080101, end: 20080201

REACTIONS (15)
  - ABNORMAL DREAMS [None]
  - AGGRESSION [None]
  - AMNESIA [None]
  - APATHY [None]
  - BOREDOM [None]
  - DEPRESSION [None]
  - DIZZINESS [None]
  - FEELING ABNORMAL [None]
  - INSOMNIA [None]
  - MALAISE [None]
  - MEMORY IMPAIRMENT [None]
  - NIGHT SWEATS [None]
  - PSYCHIATRIC SYMPTOM [None]
  - SUICIDAL IDEATION [None]
  - THINKING ABNORMAL [None]
